FAERS Safety Report 9564822 (Version 1)
Quarter: 2013Q3

REPORT INFORMATION
  Report Type: Spontaneous
  Country: GB (occurrence: GB)
  Receive Date: 20130930
  Receipt Date: 20130930
  Transmission Date: 20140515
  Serious: Yes (Other)
  Sender: FDA-Public Use
  Company Number: PHFR2013GB005471

PATIENT
  Age: 65 Year
  Sex: Female
  Weight: 57 kg

DRUGS (3)
  1. ONBREZ [Suspect]
     Dosage: 150 UG, QD
     Dates: start: 20130309
  2. ONBREZ [Suspect]
     Dosage: 150 UNK, UNK
     Dates: end: 20130820
  3. CRANBERRY BERCO [Concomitant]
     Dosage: 1 DF, UNK
     Dates: start: 2009

REACTIONS (10)
  - Restlessness [Recovering/Resolving]
  - Insomnia [Recovering/Resolving]
  - Tinnitus [Recovering/Resolving]
  - Hypoaesthesia [Recovering/Resolving]
  - Pain in extremity [Recovering/Resolving]
  - Feeling hot [Recovering/Resolving]
  - Condition aggravated [Recovering/Resolving]
  - Tremor [Recovering/Resolving]
  - Muscle spasms [Recovering/Resolving]
  - Paraesthesia [Recovering/Resolving]
